FAERS Safety Report 12259026 (Version 2)
Quarter: 2019Q1

REPORT INFORMATION
  Report Type: Spontaneous
  Country: US (occurrence: US)
  Receive Date: 20160412
  Receipt Date: 20190206
  Transmission Date: 20190417
  Serious: No
  Sender: FDA-Public Use
  Company Number: US-SA-2015SA070074

PATIENT
  Sex: Female

DRUGS (1)
  1. ALLEGRA [Suspect]
     Active Substance: FEXOFENADINE HYDROCHLORIDE
     Dosage: 60 MG,BID
     Route: 048

REACTIONS (4)
  - Asthma [Unknown]
  - Product taste abnormal [Unknown]
  - Drug hypersensitivity [Unknown]
  - Burning sensation [Unknown]
